FAERS Safety Report 10028107 (Version 1)
Quarter: 2014Q1

REPORT INFORMATION
  Report Type: Spontaneous
  Country: US (occurrence: US)
  Receive Date: 20140321
  Receipt Date: 20140321
  Transmission Date: 20141002
  Serious: Yes (Hospitalization, Other)
  Sender: FDA-Public Use
  Company Number: US-TEVA-469887USA

PATIENT
  Age: 61 Year
  Sex: Male

DRUGS (13)
  1. AZITHROMYCIN [Suspect]
     Route: 065
  2. BACTRIM [Suspect]
     Indication: ANTIFUNGAL PROPHYLAXIS
     Route: 065
  3. PANTOPRAZOLE [Suspect]
     Route: 065
  4. ATRIPLA [Suspect]
     Route: 065
  5. METOPROLOL [Concomitant]
     Route: 065
  6. FLUTICASONE PROPIONATE [Concomitant]
     Route: 055
  7. SALBUTAMOL, IPRATROPIUM BROMIDE [Concomitant]
     Route: 055
  8. LEVOTHYROXINE SODIUM [Concomitant]
     Route: 065
  9. SIMVASTATIN [Concomitant]
     Route: 065
  10. CLOPIDOGREL [Concomitant]
     Route: 065
  11. CALCIUM CARBONATE, VITAMIN D [Concomitant]
     Route: 065
  12. HYDROXYZINE [Concomitant]
     Route: 065
  13. PAROXETINE [Concomitant]
     Route: 065

REACTIONS (2)
  - Renal tubular disorder [Recovering/Resolving]
  - Tubulointerstitial nephritis [Recovering/Resolving]
